FAERS Safety Report 5903018-2 (Version None)
Quarter: 2008Q3

REPORT INFORMATION
  Report Type: 
  Country: None (occurrence: None)
  Receive Date: 20080930
  Receipt Date: 20080923
  Transmission Date: 20090109
  Serious: Yes (Other)
  Sender: FDA-Public Use
  Company Number: US-BAYER-200813871BCC

PATIENT
  Age: 50 Year
  Sex: Male

DRUGS (3)
  1. ASPIRIN [Suspect]
     Indication: STENT PLACEMENT
  2. PLAVIX [Suspect]
     Indication: STENT PLACEMENT
     Route: 048
  3. LOVENOX [Suspect]
     Indication: PREMEDICATION

REACTIONS (1)
  - STENT OCCLUSION [None]
